FAERS Safety Report 21943766 (Version 1)
Quarter: 2023Q1

REPORT INFORMATION
  Report Type: Spontaneous
  Country: US (occurrence: None)
  Receive Date: 20230202
  Receipt Date: 20230202
  Transmission Date: 20230417
  Serious: Yes (Death)
  Sender: FDA-Public Use
  Company Number: US-ROCHE-3277259

PATIENT

DRUGS (5)
  1. VENCLEXTA [Suspect]
     Active Substance: VENETOCLAX
     Indication: Product used for unknown indication
     Dosage: LAST DOSE DATE ON 13/MAY/2021
     Route: 065
     Dates: start: 20210202
  2. GAZYVA [Suspect]
     Active Substance: OBINUTUZUMAB
     Indication: Product used for unknown indication
     Dosage: LAST DOSE DATE ON 01/MAY/2021
     Route: 042
     Dates: start: 20210111
  3. IBRUTINIB [Concomitant]
     Active Substance: IBRUTINIB
  4. PREDNISONE [Concomitant]
     Active Substance: PREDNISONE
  5. REVLIMID [Concomitant]
     Active Substance: LENALIDOMIDE

REACTIONS (1)
  - COVID-19 [Fatal]
